FAERS Safety Report 11839410 (Version 1)
Quarter: 2015Q4

REPORT INFORMATION
  Report Type: Spontaneous
  Country: US (occurrence: US)
  Receive Date: 20151216
  Receipt Date: 20151216
  Transmission Date: 20160305
  Serious: Yes (Hospitalization)
  Sender: FDA-Public Use
  Company Number: US-DRREDDYS-USA/USA/15/0054676

PATIENT
  Age: 27 Year
  Sex: Female

DRUGS (2)
  1. METHIMAZOLE. [Suspect]
     Active Substance: METHIMAZOLE
     Indication: BASEDOW^S DISEASE
     Route: 065
  2. METOPROLOL SUCCINATE. [Suspect]
     Active Substance: METOPROLOL SUCCINATE
     Indication: SINUS TACHYCARDIA
     Route: 065

REACTIONS (12)
  - Hypotension [Unknown]
  - Dyspnoea [Unknown]
  - Mitral valve incompetence [Unknown]
  - Cardiac arrest [Recovered/Resolved]
  - Extra dose administered [Unknown]
  - Tricuspid valve incompetence [Unknown]
  - Cardiomyopathy [Unknown]
  - Viral infection [Unknown]
  - Pulseless electrical activity [Unknown]
  - Hyperhidrosis [Unknown]
  - Left ventricular dysfunction [Unknown]
  - Thyrotoxic crisis [Unknown]
